FAERS Safety Report 9186190 (Version 1)
Quarter: 2013Q1

REPORT INFORMATION
  Report Type: Spontaneous
  Country: US (occurrence: US)
  Receive Date: 20130325
  Receipt Date: 20130325
  Transmission Date: 20140127
  Serious: Yes (Death)
  Sender: FDA-Public Use
  Company Number: US-GLAXOSMITHKLINE-A1016895A

PATIENT
  Age: 71 Year
  Sex: Female

DRUGS (1)
  1. HYCAMTIN [Suspect]
     Indication: GALLBLADDER CANCER
     Dosage: 3MG PER DAY
     Route: 048
     Dates: start: 20121129, end: 20130102

REACTIONS (1)
  - Death [Fatal]
